FAERS Safety Report 5138721-8 (Version None)
Quarter: 2006Q4

REPORT INFORMATION
  Report Type: 
  Country: None (occurrence: None)
  Receive Date: 20061030
  Receipt Date: 20060901
  Transmission Date: 20070319
  Serious: Yes (Hospitalization)
  Sender: FDA-Public Use
  Company Number: US-MERCK-0609USA00455

PATIENT
  Age: 83 Year
  Sex: Female

DRUGS (8)
  1. FOSAMAX [Suspect]
     Indication: OSTEOPOROSIS
     Route: 048
     Dates: start: 20000101, end: 20050101
  2. FUROSEMIDE [Concomitant]
     Route: 065
  3. PREVACID [Concomitant]
     Route: 065
  4. SYNTHROID [Concomitant]
     Route: 065
  5. [THERAPY UNSPECIFIED] [Concomitant]
     Route: 065
  6. SALSALATE [Concomitant]
     Route: 065
  7. PLAQUENIL [Concomitant]
     Route: 065
  8. PREDNISONE TAB [Concomitant]
     Route: 065

REACTIONS (2)
  - COMPRESSION FRACTURE [None]
  - THERAPY NON-RESPONDER [None]
